FAERS Safety Report 6955236-2 (Version None)
Quarter: 2010Q3

REPORT INFORMATION
  Report Type: 
  Country: None (occurrence: None)
  Receive Date: 20100830
  Receipt Date: 20100817
  Transmission Date: 20110219
  Serious: Yes (Life-Threatening, Hospitalization, Other)
  Sender: FDA-Public Use
  Company Number: NL-ELI_LILLY_AND_COMPANY-NL201008004800

PATIENT
  Sex: Male
  Weight: 95 kg

DRUGS (3)
  1. ZYPREXA [Suspect]
     Indication: MAJOR DEPRESSION
     Dosage: 5 MG, UNKNOWN
     Route: 065
     Dates: start: 20080528, end: 20080625
  2. LITHIUM CARBONATE [Concomitant]
     Dosage: 1200 MG, UNKNOWN
     Route: 065
     Dates: start: 20060222
  3. NORTRIPTYLINE HCL [Concomitant]
     Dosage: 100 MG, UNKNOWN
     Route: 065
     Dates: start: 20060622

REACTIONS (10)
  - ANAPHYLACTIC SHOCK [None]
  - BLISTER [None]
  - BLOOD PRESSURE INCREASED [None]
  - DISORIENTATION [None]
  - DYSPNOEA [None]
  - FLUID RETENTION [None]
  - HALLUCINATION [None]
  - HYPOTENSION [None]
  - PYREXIA [None]
  - RASH GENERALISED [None]
